FAERS Safety Report 8396622-6 (Version None)
Quarter: 2012Q2

REPORT INFORMATION
  Report Type: 
  Country: None (occurrence: None)
  Receive Date: 20120530
  Receipt Date: 20120524
  Transmission Date: 20120825
  Serious: No
  Sender: FDA-Public Use
  Company Number: US-PFIZER INC-2012126536

PATIENT
  Sex: Female

DRUGS (2)
  1. ADVIL COLD AND SINUS [Suspect]
     Indication: SINUSITIS
     Dosage: 200 MG, UNK
     Route: 048
  2. ADVIL COLD AND SINUS [Suspect]
     Indication: SINUS DISORDER

REACTIONS (3)
  - POOR QUALITY DRUG ADMINISTERED [None]
  - FATIGUE [None]
  - SEDATION [None]
